FAERS Safety Report 5824737-2 (Version None)
Quarter: 2008Q3

REPORT INFORMATION
  Report Type: 
  Country: None (occurrence: None)
  Receive Date: 20080728
  Receipt Date: 20080722
  Transmission Date: 20090109
  Serious: Yes (Hospitalization)
  Sender: FDA-Public Use
  Company Number: TR-JNJFOC-20080705829

PATIENT
  Age: 3 Day
  Sex: Female
  Weight: 1.33 kg

DRUGS (2)
  1. IBUPROFEN [Suspect]
     Route: 048
  2. IBUPROFEN [Suspect]
     Indication: PATENT DUCTUS ARTERIOSUS
     Dosage: INITIAL DOSE OF 10 MG/KG FOLLOWED BY TWO DOSES OF 5 MG/KG EVERY 12 HOURS
     Route: 048

REACTIONS (2)
  - PULMONARY OEDEMA [None]
  - RENAL FAILURE ACUTE [None]
